FAERS Safety Report 9412492 (Version 3)
Quarter: 2013Q4

REPORT INFORMATION
  Report Type: Spontaneous
  Country: BD (occurrence: None)
  Receive Date: 20130703
  Receipt Date: 20131015
  Transmission Date: 20140711
  Serious: Yes (Death, Hospitalization, Other)
  Sender: FDA-Public Use
  Company Number: BD-JNJFOC-20130502887

PATIENT
  Age: 57 Year
  Sex: Male

DRUGS (1)
  1. DACOGEN (DECITABINE) LYOPHILIZED POWDER [Suspect]
     Indication: ACUTE MYELOID LEUKAEMIA
     Dosage: IN 28 DAY
     Route: 042
     Dates: start: 201207

REACTIONS (14)
  - Platelet count decreased [None]
  - Drug ineffective [None]
  - Haemoglobin decreased [None]
  - Haematocrit decreased [None]
  - Red cell distribution width increased [None]
  - Eosinophil count increased [None]
  - Neutrophil percentage decreased [None]
  - Monocyte percentage increased [None]
  - White blood cell count increased [None]
  - Platelet count decreased [None]
  - Asthenia [None]
  - Dysgeusia [None]
  - Drug ineffective [None]
  - Pain [None]
